FAERS Safety Report 24580181 (Version 1)
Quarter: 2024Q4

REPORT INFORMATION
  Report Type: Spontaneous
  Country: US (occurrence: None)
  Receive Date: 20241104
  Receipt Date: 20241104
  Transmission Date: 20250115
  Serious: Yes (Other)
  Sender: Public
  Company Number: None

PATIENT
  Age: 7 Year
  Sex: Male
  Weight: 24.75 kg

DRUGS (3)
  1. CLOBAZAM [Suspect]
     Active Substance: CLOBAZAM
     Indication: Epilepsy
     Dates: start: 20221101, end: 20241001
  2. DEPAKOTE [Concomitant]
     Active Substance: DIVALPROEX SODIUM
  3. Acetozolamide [Concomitant]

REACTIONS (3)
  - Abnormal behaviour [None]
  - Self-injurious ideation [None]
  - Aggression [None]

NARRATIVE: CASE EVENT DATE: 20241001
